FAERS Safety Report 9717802 (Version 2)
Quarter: 2014Q1

REPORT INFORMATION
  Report Type: Spontaneous
  Country: CA (occurrence: CA)
  Receive Date: 20131127
  Receipt Date: 20140131
  Transmission Date: 20141002
  Serious: Yes (Hospitalization)
  Sender: FDA-Public Use
  Company Number: CA-GILEAD-2013-0088759

PATIENT
  Age: 69 Year
  Sex: Female

DRUGS (7)
  1. AMBRISENTAN [Suspect]
     Indication: PULMONARY ARTERIAL HYPERTENSION
     Dosage: 5000NG UNKNOWN
     Route: 065
     Dates: start: 20101016
  2. PANTOLOC                           /01263204/ [Concomitant]
  3. VITAMIN D                          /00318501/ [Concomitant]
  4. DIGOXIN [Concomitant]
  5. LASIX                              /00032601/ [Concomitant]
  6. METFORMIN [Concomitant]
  7. ALPRAZOLAM [Concomitant]

REACTIONS (3)
  - Musculoskeletal discomfort [Recovered/Resolved]
  - Pruritus generalised [Not Recovered/Not Resolved]
  - Dyspnoea [Recovered/Resolved]
